FAERS Safety Report 8234048-6 (Version None)
Quarter: 2012Q1

REPORT INFORMATION
  Report Type: 
  Country: None (occurrence: None)
  Receive Date: 20120326
  Receipt Date: 20120326
  Transmission Date: 20120608
  Serious: Yes (Hospitalization)
  Sender: FDA-Public Use
  Company Number: None

PATIENT
  Age: 85 Year
  Sex: Female
  Weight: 61.688 kg

DRUGS (1)
  1. LEVOTHYROXINE SODIUM [Suspect]
     Indication: HYPOTHYROIDISM
     Dosage: 50 MCG TAB
     Route: 048
     Dates: start: 20120314, end: 20120321

REACTIONS (6)
  - FAECAL INCONTINENCE [None]
  - MUSCLE SPASMS [None]
  - CONVULSION [None]
  - ASTHENIA [None]
  - DRUG INTERACTION [None]
  - LOSS OF CONSCIOUSNESS [None]
